FAERS Safety Report 8463759-2 (Version None)
Quarter: 2012Q2

REPORT INFORMATION
  Report Type: 
  Country: None (occurrence: None)
  Receive Date: 20120323
  Receipt Date: 20111216
  Transmission Date: 20120825
  Serious: Yes (Life-Threatening, Hospitalization, Disabling, Other)
  Sender: FDA-Public Use
  Company Number: 163-21880-1111169ST

PATIENT
  Age: 53 Year
  Sex: Male

DRUGS (5)
  1. REVLIMID [Suspect]
     Indication: MULTIPLE MYELOMA
     Dosage: 20 MG, 3X A WEEK, PO; 10 MG, 3X A WEEK, PO
     Route: 048
     Dates: start: 20090715
  2. REVLIMID [Suspect]
     Indication: MULTIPLE MYELOMA
     Dosage: 20 MG, 3X A WEEK, PO; 10 MG, 3X A WEEK, PO
     Route: 048
     Dates: start: 20091130, end: 20110715
  3. LSINOPRIL (LISINOPRIL) [Concomitant]
  4. EPOGEN [Concomitant]
  5. PHOSLO [Concomitant]

REACTIONS (1)
  - ISCHAEMIC STROKE [None]
